FAERS Safety Report 11826954 (Version 9)
Quarter: 2016Q4

REPORT INFORMATION
  Report Type: Spontaneous
  Country: BR (occurrence: BR)
  Receive Date: 20151211
  Receipt Date: 20161018
  Transmission Date: 20170206
  Serious: Yes (Other)
  Sender: FDA-Public Use
  Company Number: BR-JNJFOC-20151209082

PATIENT
  Age: 19 Year
  Sex: Female

DRUGS (2)
  1. STELARA [Suspect]
     Active Substance: USTEKINUMAB
     Indication: PSORIASIS
     Route: 058
  2. STELARA [Suspect]
     Active Substance: USTEKINUMAB
     Indication: PSORIASIS
     Route: 058
     Dates: start: 20150806

REACTIONS (14)
  - Serum ferritin decreased [Unknown]
  - Abscess [Unknown]
  - Rash [Unknown]
  - Dry skin [Unknown]
  - Fatigue [Unknown]
  - Asthma [Unknown]
  - Alopecia [Unknown]
  - Drug effect incomplete [Unknown]
  - Constipation [Unknown]
  - Drug ineffective [Unknown]
  - Off label use [Unknown]
  - Oligomenorrhoea [Unknown]
  - Ileus paralytic [Unknown]
  - Product use issue [Unknown]

NARRATIVE: CASE EVENT DATE: 201508
